FAERS Safety Report 21144341 (Version 1)
Quarter: 2022Q3

REPORT INFORMATION
  Report Type: Spontaneous
  Country: CN (occurrence: CN)
  Receive Date: 20220728
  Receipt Date: 20220728
  Transmission Date: 20221027
  Serious: Yes (Hospitalization, Other)
  Sender: FDA-Public Use
  Company Number: CN-FreseniusKabi-FK202210272

PATIENT
  Age: 2 Month
  Sex: Male
  Weight: 2.31 kg

DRUGS (9)
  1. EGG PHOSPHOLIPIDS\GLYCERIN\MEDIUM-CHAIN TRIGLYCERIDES\SOYBEAN OIL [Suspect]
     Active Substance: EGG PHOSPHOLIPIDS\GLYCERIN\MEDIUM-CHAIN TRIGLYCERIDES\SOYBEAN OIL
     Indication: Necrotising enterocolitis neonatal
     Route: 041
     Dates: start: 20220604, end: 20220717
  2. GLYCOPHOS [Concomitant]
     Active Substance: SODIUM GLYCEROPHOSPHATE ANHYDROUS
     Indication: Necrotising enterocolitis neonatal
     Route: 041
     Dates: start: 20220604, end: 20220717
  3. VITAMINS [Concomitant]
     Active Substance: VITAMINS
     Indication: Necrotising enterocolitis neonatal
     Route: 041
     Dates: start: 20220604, end: 20220717
  4. PEDIATRIC COMPOUND AMINO ACID INJECTION (18AA I) [Concomitant]
     Indication: Necrotising enterocolitis neonatal
     Route: 041
     Dates: start: 20220604, end: 20220717
  5. POTASSIUM CHLORIDE [Concomitant]
     Active Substance: POTASSIUM CHLORIDE
     Indication: Necrotising enterocolitis neonatal
     Route: 041
     Dates: start: 20220604, end: 20220717
  6. FAT SOLUBLE VITAMIN FOR INJECTION (I) [Concomitant]
     Indication: Necrotising enterocolitis neonatal
     Route: 041
     Dates: start: 20220604, end: 20220717
  7. SODIUM CHLORIDE [Concomitant]
     Active Substance: SODIUM CHLORIDE
     Indication: Necrotising enterocolitis neonatal
     Route: 041
     Dates: start: 20220604, end: 20220717
  8. DEXTROSE [Concomitant]
     Active Substance: DEXTROSE
     Indication: Necrotising enterocolitis neonatal
     Route: 041
     Dates: start: 20220604, end: 20220717
  9. DEXTROSE [Concomitant]
     Active Substance: DEXTROSE
     Indication: Necrotising enterocolitis neonatal
     Route: 041
     Dates: start: 20220604, end: 20220717

REACTIONS (1)
  - Hepatitis cholestatic [Recovering/Resolving]

NARRATIVE: CASE EVENT DATE: 20220624
